FAERS Safety Report 19070320 (Version 1)
Quarter: 2021Q1

REPORT INFORMATION
  Report Type: Spontaneous
  Country: DE (occurrence: DE)
  Receive Date: 20210329
  Receipt Date: 20210329
  Transmission Date: 20210420
  Serious: Yes (Other)
  Sender: FDA-Public Use
  Company Number: DE-US-PROVELL PHARMACEUTICALS LLC-9227098

PATIENT
  Sex: Female

DRUGS (3)
  1. SANDOSTATIN [Suspect]
     Active Substance: OCTREOTIDE ACETATE
     Indication: NEUROENDOCRINE TUMOUR
  2. EUTHYROX [Suspect]
     Active Substance: LEVOTHYROXINE SODIUM
     Indication: POST PROCEDURAL HYPOTHYROIDISM
  3. SANDOSTATIN [Suspect]
     Active Substance: OCTREOTIDE ACETATE

REACTIONS (19)
  - Eczema [Not Recovered/Not Resolved]
  - Thyroid function test abnormal [Unknown]
  - Stress [Unknown]
  - Nausea [Unknown]
  - Palpitations [Unknown]
  - Metastases to liver [Unknown]
  - Varicose vein [Unknown]
  - Contrast media allergy [Unknown]
  - Syncope [Unknown]
  - Weight decreased [Unknown]
  - Appendicectomy [Unknown]
  - Cholecystectomy [Unknown]
  - Thrombosis [Unknown]
  - Dizziness [Unknown]
  - Asthenia [Unknown]
  - Neuroendocrine tumour [Unknown]
  - Colon cancer [Unknown]
  - Dyspnoea [Unknown]
  - Diarrhoea [Unknown]
